FAERS Safety Report 8809516 (Version 1)
Quarter: 2012Q4

REPORT INFORMATION
  Report Type: 
  Country: US (occurrence: US)
  Receive Date: 20120926
  Receipt Date: 20120926
  Transmission Date: 20130627
  Serious: Yes (Other)
  Sender: FDA-Public Use
  Company Number: US-ROCHE-1102905

PATIENT
  Age: 64 Year
  Sex: Female

DRUGS (3)
  1. HERCEPTIN [Suspect]
     Indication: PRODUCT USED FOR UNKNOWN INDICATION
     Route: 065
  2. AVASTIN [Suspect]
     Indication: BREAST CANCER FEMALE
     Route: 065
  3. AVASTIN [Suspect]
     Dosage: on 10/Aug/2006 as single agent
     Route: 065

REACTIONS (7)
  - Pleural effusion [Unknown]
  - Lymphadenopathy [Unknown]
  - Disease progression [Unknown]
  - Allergic cough [Unknown]
  - Haemoptysis [Unknown]
  - Metastases to liver [Unknown]
  - Rash [Unknown]
